FAERS Safety Report 6386896-5 (Version None)
Quarter: 2009Q4

REPORT INFORMATION
  Report Type: 
  Country: None (occurrence: None)
  Receive Date: 20091002
  Receipt Date: 20090921
  Transmission Date: 20100525
  Serious: Yes (Hospitalization)
  Sender: FDA-Public Use
  Company Number: GB-PFIZER INC-2009257880

PATIENT
  Age: 66 Year

DRUGS (4)
  1. DALTEPARIN SODIUM [Suspect]
     Dosage: UNK
     Dates: start: 20090723, end: 20090725
  2. CISPLATIN [Suspect]
     Dosage: 65 MG, UNK
     Route: 042
     Dates: start: 20090723, end: 20090723
  3. GEMCITABINE [Suspect]
     Dosage: 1685 MG, UNK
     Route: 042
     Dates: start: 20090723, end: 20090730
  4. CHLORDIAZEPOXIDE [Concomitant]

REACTIONS (1)
  - RENAL FAILURE [None]
